FAERS Safety Report 20672849 (Version 1)
Quarter: 2022Q2

REPORT INFORMATION
  Report Type: Report from Study
  Country: US (occurrence: US)
  Receive Date: 20220405
  Receipt Date: 20220405
  Transmission Date: 20220721
  Serious: No
  Sender: FDA-Public Use
  Company Number: US-NOVARTISTESTPH-NVSC2022US076239

PATIENT
  Sex: Male

DRUGS (1)
  1. ENTRESTO [Suspect]
     Active Substance: SACUBITRIL\VALSARTAN
     Indication: Product used for unknown indication
     Dosage: 24 MG, QD, 24/26 MG (SACUBITRIL: 24 MG, VALSARTAN: 26 MG)
     Route: 048
     Dates: start: 20210930

REACTIONS (2)
  - Wrong technique in product usage process [Unknown]
  - Product use issue [Unknown]
